FAERS Safety Report 11251958 (Version 2)
Quarter: 2015Q3

REPORT INFORMATION
  Report Type: Spontaneous
  Country: US (occurrence: US)
  Receive Date: 20150708
  Receipt Date: 20150903
  Transmission Date: 20151125
  Serious: Yes (Death, Other)
  Sender: FDA-Public Use
  Company Number: US-ELI_LILLY_AND_COMPANY-US201211000773

PATIENT
  Age: 23 Year
  Sex: Male

DRUGS (21)
  1. PROZAC [Suspect]
     Active Substance: FLUOXETINE HYDROCHLORIDE
     Dosage: 1 DF, UNKNOWN
  2. ZOLOFT [Concomitant]
     Active Substance: SERTRALINE HYDROCHLORIDE
     Dosage: 1 DF, UNKNOWN
  3. LITHIUM. [Concomitant]
     Active Substance: LITHIUM
     Dosage: 1 DF, UNKNOWN
  4. COMPAZINE [Concomitant]
     Active Substance: PROCHLORPERAZINE MALEATE
     Dosage: 1 DF, UNKNOWN
  5. CELEXA [Concomitant]
     Active Substance: CITALOPRAM HYDROBROMIDE
     Dosage: 1 DF, UNKNOWN
  6. LEXAPRO [Concomitant]
     Active Substance: ESCITALOPRAM OXALATE
     Dosage: 1 DF, UNKNOWN
  7. LUNESTA [Concomitant]
     Active Substance: ESZOPICLONE
     Dosage: 1 DF, UNKNOWN
  8. DESYREL [Concomitant]
     Active Substance: TRAZODONE HYDROCHLORIDE
     Dosage: 1 DF, UNKNOWN
  9. SEROQUEL [Concomitant]
     Active Substance: QUETIAPINE FUMARATE
     Dosage: 1 DF, UNKNOWN
  10. XANAX [Concomitant]
     Active Substance: ALPRAZOLAM
     Dosage: 1 DF, UNKNOWN
  11. KLONOPIN [Concomitant]
     Active Substance: CLONAZEPAM
     Dosage: 1 DF, UNKNOWN
  12. VALIUM [Concomitant]
     Active Substance: DIAZEPAM
     Dosage: 1 DF, UNKNOWN
  13. DEPAKOTE [Concomitant]
     Active Substance: DIVALPROEX SODIUM
     Dosage: 1 DF, UNKNOWN
  14. PAXIL [Concomitant]
     Active Substance: PAROXETINE HYDROCHLORIDE
     Dosage: 1 DF, UNKNOWN
  15. REMERON [Concomitant]
     Active Substance: MIRTAZAPINE
     Dosage: 1 DF, UNKNOWN
  16. WELLBUTRIN [Concomitant]
     Active Substance: BUPROPION HYDROCHLORIDE
     Dosage: 1 DF, UNKNOWN
  17. HALDOL [Concomitant]
     Active Substance: HALOPERIDOL
     Dosage: 1 DF, UNKNOWN
  18. ATIVAN [Concomitant]
     Active Substance: LORAZEPAM
     Dosage: 1 DF, UNKNOWN
  19. CYMBALTA [Suspect]
     Active Substance: DULOXETINE HYDROCHLORIDE
     Dosage: 1 DF, UNKNOWN
  20. EFFEXOR [Concomitant]
     Active Substance: VENLAFAXINE HYDROCHLORIDE
     Dosage: 1 DF, UNKNOWN
  21. TRILEPTAL [Concomitant]
     Active Substance: OXCARBAZEPINE
     Dosage: 1 DF, UNKNOWN

REACTIONS (1)
  - Accidental overdose [Fatal]
